FAERS Safety Report 6680373-X (Version None)
Quarter: 2010Q2

REPORT INFORMATION
  Report Type: 
  Country: None (occurrence: None)
  Receive Date: 20100412
  Receipt Date: 20100402
  Transmission Date: 20101027
  Serious: No
  Sender: FDA-Public Use
  Company Number: 20108122

PATIENT
  Sex: Male

DRUGS (1)
  1. LIORESAL [Suspect]
     Indication: MUSCLE SPASTICITY
     Dosage: 260 MCG, DAILY INTRATECHAL
     Route: 037

REACTIONS (10)
  - COGNITIVE DISORDER [None]
  - CONFUSIONAL STATE [None]
  - DRUG WITHDRAWAL SYNDROME [None]
  - DYSPNOEA [None]
  - HEADACHE [None]
  - HYPERTONIA [None]
  - IATROGENIC INJURY [None]
  - LETHARGY [None]
  - OVERDOSE [None]
  - PRURITUS [None]
